FAERS Safety Report 11071535 (Version 2)
Quarter: 2015Q2

REPORT INFORMATION
  Report Type: Spontaneous
  Country: JP (occurrence: JP)
  Receive Date: 20150428
  Receipt Date: 20150512
  Transmission Date: 20150821
  Serious: Yes (Hospitalization)
  Sender: FDA-Public Use
  Company Number: JP-ELI_LILLY_AND_COMPANY-JP201504007755

PATIENT
  Age: 88 Year
  Sex: Female
  Weight: 48 kg

DRUGS (6)
  1. RABEPRAZOLE                        /01417202/ [Concomitant]
  2. NIFEDIPINE. [Concomitant]
     Active Substance: NIFEDIPINE
  3. FORTEO [Suspect]
     Active Substance: TERIPARATIDE
     Indication: PRODUCT USED FOR UNKNOWN INDICATION
     Route: 058
  4. HYPEN                              /00613801/ [Concomitant]
     Active Substance: ETODOLAC
  5. REBAMIPIDE [Concomitant]
     Active Substance: REBAMIPIDE
  6. ECARD [Concomitant]
     Active Substance: CANDESARTAN CILEXETIL\HYDROCHLOROTHIAZIDE

REACTIONS (1)
  - Blood creatinine increased [Unknown]

NARRATIVE: CASE EVENT DATE: 20150421
